FAERS Safety Report 5904024-4 (Version None)
Quarter: 2008Q3

REPORT INFORMATION
  Report Type: 
  Country: None (occurrence: None)
  Receive Date: 20080919
  Receipt Date: 20080717
  Transmission Date: 20090109
  Serious: No
  Sender: FDA-Public Use
  Company Number: US-WYE-H05184908

PATIENT
  Age: 47 Year
  Sex: Female
  Weight: 79 kg

DRUGS (2)
  1. PRISTIQ (DESVENLAFAXINE SUCCINATE MONOHYDRATE, E) [Suspect]
     Indication: DEPRESSION
     Dosage: 50 MG 1X PER 1 DAY, ORAL
     Route: 048
     Dates: start: 20080717
  2. THYROID TAB [Concomitant]

REACTIONS (4)
  - ASTHENIA [None]
  - DISTURBANCE IN ATTENTION [None]
  - DIZZINESS [None]
  - SOMNOLENCE [None]
